FAERS Safety Report 14371205 (Version 1)
Quarter: 2018Q1

REPORT INFORMATION
  Report Type: Spontaneous
  Country: US (occurrence: US)
  Receive Date: 20180109
  Receipt Date: 20180109
  Transmission Date: 20180509
  Serious: Yes (Hospitalization)
  Sender: FDA-Public Use
  Company Number: None

PATIENT
  Age: 68 Year
  Sex: Male

DRUGS (2)
  1. VANCOMYCIN [Suspect]
     Active Substance: VANCOMYCIN
     Indication: AMPUTATION
     Route: 042
     Dates: start: 20171201, end: 20171218
  2. VANCOMYCIN [Suspect]
     Active Substance: VANCOMYCIN
     Indication: OSTEOMYELITIS
     Route: 042
     Dates: start: 20171201, end: 20171218

REACTIONS (2)
  - Acute kidney injury [None]
  - Antibiotic level above therapeutic [None]

NARRATIVE: CASE EVENT DATE: 20171218
